FAERS Safety Report 5504757-8 (Version None)
Quarter: 2007Q4

REPORT INFORMATION
  Report Type: 
  Country: None (occurrence: None)
  Receive Date: 20071102
  Receipt Date: 20071022
  Transmission Date: 20080405
  Serious: Yes (Hospitalization)
  Sender: FDA-Public Use
  Company Number: AU-ASTRAZENECA-2007AP06677

PATIENT
  Age: 49 Year
  Sex: Male

DRUGS (4)
  1. SEROQUEL [Suspect]
     Route: 048
     Dates: start: 20070801
  2. SEROQUEL [Suspect]
     Route: 048
  3. TALAM [Concomitant]
     Dates: start: 20070501
  4. ZYPREXA [Concomitant]
     Dates: start: 20070501

REACTIONS (4)
  - AGITATION [None]
  - CATATONIA [None]
  - DYSKINESIA [None]
  - TRISMUS [None]
